FAERS Safety Report 12943422 (Version 1)
Quarter: 2016Q4

REPORT INFORMATION
  Report Type: Spontaneous
  Country: US (occurrence: US)
  Receive Date: 20161115
  Receipt Date: 20161115
  Transmission Date: 20170207
  Serious: Yes (Other)
  Sender: FDA-Public Use
  Company Number: US-ELI_LILLY_AND_COMPANY-US201611001733

PATIENT
  Sex: Male

DRUGS (3)
  1. PORTRAZZA [Suspect]
     Active Substance: NECITUMUMAB
     Indication: NON-SMALL CELL LUNG CANCER
     Dosage: UNK, UNKNOWN
     Route: 065
     Dates: start: 201610
  2. GEMZAR [Suspect]
     Active Substance: GEMCITABINE HYDROCHLORIDE
     Indication: PRODUCT USED FOR UNKNOWN INDICATION
     Dosage: UNK, UNKNOWN
     Route: 065
  3. CISPLATIN. [Concomitant]
     Active Substance: CISPLATIN
     Dosage: UNK, UNKNOWN
     Route: 065

REACTIONS (4)
  - Cough [Unknown]
  - Malaise [Unknown]
  - Haematotoxicity [Unknown]
  - Rash [Unknown]

NARRATIVE: CASE EVENT DATE: 201610
